FAERS Safety Report 14822319 (Version 2)
Quarter: 2018Q2

REPORT INFORMATION
  Report Type: Report from Study
  Country: BE (occurrence: BE)
  Receive Date: 20180427
  Receipt Date: 20180504
  Transmission Date: 20180711
  Serious: Yes (Other)
  Sender: FDA-Public Use
  Company Number: BE-PFIZER INC-2018173618

PATIENT
  Sex: Female

DRUGS (3)
  1. CYCLOPHOSPHAMIDE. [Suspect]
     Active Substance: CYCLOPHOSPHAMIDE
     Indication: BREAST CANCER
     Dosage: 100 MG/M2, CYCLIC (SIX CYCLES, ON DAYS 1 AND THROUGH 14)
     Route: 048
  2. FLUOROURACIL. [Suspect]
     Active Substance: FLUOROURACIL
     Indication: BREAST CANCER
     Dosage: 600 MG/M2, CYCLIC (SIX CYCLES ON DAYS 1 AND 8 EVERY 28 DAYS)
     Route: 042
  3. METHOTREXATE SODIUM. [Suspect]
     Active Substance: METHOTREXATE SODIUM
     Indication: BREAST CANCER
     Dosage: 40 MG/M2, CYCLIC (SIX CYCLES ON DAYS, 1 AND 8 EVERY 28 DAYS)
     Route: 042

REACTIONS (1)
  - Cardiac failure congestive [Unknown]
